FAERS Safety Report 5157993-7 (Version None)
Quarter: 2006Q4

REPORT INFORMATION
  Report Type: 
  Country: None (occurrence: None)
  Receive Date: 20061127
  Receipt Date: 20061110
  Transmission Date: 20070319
  Serious: Yes (Other)
  Sender: FDA-Public Use
  Company Number: CG-BOEHRINGER INGELHEIM GMBH, GERMANY-2006-DE-05974GD

PATIENT

DRUGS (2)
  1. NEVIRAPINE [Suspect]
     Indication: HUMAN IMMUNODEFICIENCY VIRUS TRANSMISSION
  2. NEVIRAPINE [Suspect]
     Indication: PROPHYLAXIS

REACTIONS (3)
  - DRUG EXPOSURE DURING PREGNANCY [None]
  - HIV INFECTION [None]
  - MATERNAL CONDITION AFFECTING FOETUS [None]
